FAERS Safety Report 9295206 (Version 1)
Quarter: 2013Q2

REPORT INFORMATION
  Report Type: Spontaneous
  Country: US (occurrence: None)
  Receive Date: 20130516
  Receipt Date: 20130516
  Transmission Date: 20140414
  Serious: Yes (Hospitalization)
  Sender: FDA-Public Use
  Company Number: None

PATIENT
  Age: 70 Year
  Sex: Female
  Weight: 69 kg

DRUGS (13)
  1. WARFARIN [Suspect]
     Indication: PERIPHERAL ARTERIAL OCCLUSIVE DISEASE
     Dosage: PRIOR TO ADMISSIONS
     Route: 048
  2. WARFARIN [Suspect]
     Indication: STENT PLACEMENT
     Dosage: PRIOR TO ADMISSIONS
     Route: 048
  3. IBUPROFEN [Suspect]
     Indication: UPPER RESPIRATORY TRACT INFECTION
     Dosage: PRIOR TO ADMISSION 400 MG Q4H PRN
     Route: 048
  4. IBUPROFEN [Suspect]
     Indication: PAIN
     Dosage: PRIOR TO ADMISSION 400 MG Q4H PRN
     Route: 048
  5. CLOPIDOGREL [Concomitant]
  6. TRAZODONE [Concomitant]
  7. MEMANTINE [Concomitant]
  8. SITAGLIPTIN [Concomitant]
  9. LOSARTAN [Concomitant]
  10. FOLIC ACID [Concomitant]
  11. CYANOCOBALAMIN [Concomitant]
  12. ERGOCALCIFEROL [Concomitant]
  13. BUDESONIDE/FORMOTEROL [Concomitant]

REACTIONS (7)
  - Device occlusion [None]
  - Haematochezia [None]
  - International normalised ratio increased [None]
  - Gastritis erosive [None]
  - Duodenal ulcer [None]
  - Renal failure acute [None]
  - Gangrene [None]
